FAERS Safety Report 13603219 (Version 1)
Quarter: 2017Q2

REPORT INFORMATION
  Report Type: Other
  Country: JP (occurrence: JP)
  Receive Date: 20170601
  Receipt Date: 20170601
  Transmission Date: 20170830
  Serious: Yes (Other)
  Sender: FDA-Public Use
  Company Number: JP-MLMSERVICE-20170516-0683503-1

PATIENT
  Sex: Female
  Weight: 1.97 kg

DRUGS (6)
  1. NITROUS OXIDE. [Concomitant]
     Active Substance: NITROUS OXIDE
  2. OXYGEN 100% [Suspect]
     Active Substance: OXYGEN
  3. SILDENAFIL. [Suspect]
     Active Substance: SILDENAFIL
  4. EPOPROSTENOL. [Concomitant]
     Active Substance: EPOPROSTENOL
  5. MILRINONE LACTATE. [Concomitant]
     Active Substance: MILRINONE LACTATE
  6. DOPAMINE [Concomitant]
     Active Substance: DOPAMINE\DOPAMINE HYDROCHLORIDE

REACTIONS (1)
  - Retinopathy of prematurity [Unknown]
